FAERS Safety Report 8244005-1 (Version None)
Quarter: 2012Q1

REPORT INFORMATION
  Report Type: 
  Country: None (occurrence: None)
  Receive Date: 20120329
  Receipt Date: 20120321
  Transmission Date: 20120608
  Serious: Yes (Hospitalization)
  Sender: FDA-Public Use
  Company Number: US-US-EMD SERONO, INC.-7121108

PATIENT
  Sex: Female

DRUGS (4)
  1. UNSPECIFIED BLOOD PRESSURE MEDICATION [Concomitant]
     Indication: BLOOD PRESSURE ABNORMAL
  2. KEPPRA [Concomitant]
     Indication: CONVULSION
  3. REBIF [Suspect]
     Indication: MULTIPLE SCLEROSIS
     Route: 058
     Dates: start: 20030101
  4. LAMICTAL [Concomitant]
     Indication: CONVULSION

REACTIONS (1)
  - PANCREATITIS [None]
